FAERS Safety Report 9660565 (Version 2)
Quarter: 2013Q4

REPORT INFORMATION
  Report Type: Spontaneous
  Country: FR (occurrence: FR)
  Receive Date: 20131031
  Receipt Date: 20131115
  Transmission Date: 20140711
  Serious: Yes (Hospitalization, Other)
  Sender: FDA-Public Use
  Company Number: FR-PFIZER INC-2013305473

PATIENT
  Age: 60 Year
  Sex: Female

DRUGS (22)
  1. STEDIRIL [Suspect]
     Indication: CONTRACEPTION
     Dosage: UNK
     Dates: start: 1969, end: 1990
  2. ISOMERIDE [Suspect]
     Indication: DECREASED APPETITE
     Dosage: UNK
     Dates: start: 1986
  3. RINUREL [Suspect]
     Dosage: UNK
  4. ACTIFED RHUME [Concomitant]
  5. RHINUREFLEX [Concomitant]
  6. FERVEX [Concomitant]
  7. HUMEX [Concomitant]
  8. RHINATHIOL [Concomitant]
     Indication: DECREASED APPETITE
     Route: 045
  9. EFFERALGAN CODEINE [Concomitant]
     Dosage: 1 TO 2 TABLETS PER DAY
  10. LOXEN [Concomitant]
     Dosage: 1 DF, 2X/DAY (1 DF IN THE MORNING AND 1 IN THE EVENING)
     Dates: start: 2007, end: 201209
  11. PROPRANOLOL HYDROCHLORIDE [Concomitant]
     Dosage: 40 MG, 2X/DAY
  12. NEBILOX [Concomitant]
     Dosage: 5 MG, 1X/DAY
     Dates: start: 2000
  13. STODAL [Concomitant]
  14. ALLIUM SATIVUM [Concomitant]
  15. SOYA LECITHIN [Concomitant]
     Dosage: UNK
     Route: 048
     Dates: start: 2000
  16. HELICIDINE [Concomitant]
  17. NEBIVOLOL [Concomitant]
  18. EUPANTOL [Concomitant]
     Dosage: 20 MG, 1X/DAY
     Dates: start: 2007, end: 201209
  19. PLAVIX [Concomitant]
     Dosage: 75 MG, 1X/DAY
     Dates: start: 2007, end: 201209
  20. TANAKAN [Concomitant]
     Dosage: 1 DF, 3X/DAY
     Dates: start: 2007, end: 201209
  21. FONZYLANE [Concomitant]
     Dosage: UNK
     Dates: start: 2007, end: 201209
  22. VISCERALGINE [Concomitant]
     Dosage: UNK
     Dates: start: 2007, end: 201209

REACTIONS (1)
  - Pulmonary arterial hypertension [Not Recovered/Not Resolved]
